FAERS Safety Report 25308039 (Version 1)
Quarter: 2025Q2

REPORT INFORMATION
  Report Type: Report from Study
  Country: US (occurrence: US)
  Receive Date: 20250513
  Receipt Date: 20250513
  Transmission Date: 20250716
  Serious: Yes (Death)
  Sender: BAYER HEALTHCARE PHARMACEUTICALS INC.
  Company Number: US-BAYER-2025A064649

PATIENT
  Age: 82 Year
  Sex: Female
  Weight: 55.329 kg

DRUGS (24)
  1. ADEMPAS [Suspect]
     Active Substance: RIOCIGUAT
     Indication: Pulmonary arterial hypertension
     Dates: start: 20250106
  2. ADEMPAS [Suspect]
     Active Substance: RIOCIGUAT
     Indication: Pulmonary arterial hypertension
     Dosage: 2.5 MG, TID
     Route: 048
  3. VITAMIN D3 [Concomitant]
     Active Substance: CHOLECALCIFEROL
  4. VITAMINS [Concomitant]
     Active Substance: VITAMINS
  5. ELIQUIS [Concomitant]
     Active Substance: APIXABAN
  6. ABSORBINE [Concomitant]
     Active Substance: MENTHOL
  7. CICLOPIROX [Concomitant]
     Active Substance: CICLOPIROX
  8. PREMARIN [Concomitant]
     Active Substance: ESTROGENS, CONJUGATED
  9. B12 active [Concomitant]
  10. ALBUTEROL SULFATE [Concomitant]
     Active Substance: ALBUTEROL SULFATE
  11. VITAMIN B12 [Concomitant]
     Active Substance: CYANOCOBALAMIN
  12. WINREVAIR [Concomitant]
     Active Substance: SOTATERCEPT-CSRK
  13. LIPITOR [Concomitant]
     Active Substance: ATORVASTATIN CALCIUM
  14. METOPROLOL SUCCINATE [Concomitant]
     Active Substance: METOPROLOL SUCCINATE
  15. BIOTIN [Concomitant]
     Active Substance: BIOTIN
  16. IRON [Concomitant]
     Active Substance: IRON
  17. Women^s daily one [Concomitant]
  18. PREDNISONE [Concomitant]
     Active Substance: PREDNISONE
  19. OXYGEN [Concomitant]
     Active Substance: OXYGEN
  20. GABAPENTIN [Concomitant]
     Active Substance: GABAPENTIN
  21. ACETAMINOPHEN [Concomitant]
     Active Substance: ACETAMINOPHEN
  22. OMEPRAZOLE [Concomitant]
     Active Substance: OMEPRAZOLE
  23. WHEY [Concomitant]
     Active Substance: WHEY
  24. TYVASO [Concomitant]
     Active Substance: TREPROSTINIL

REACTIONS (1)
  - Death [Fatal]

NARRATIVE: CASE EVENT DATE: 20250505
